FAERS Safety Report 7524808-9 (Version None)
Quarter: 2011Q2

REPORT INFORMATION
  Report Type: 
  Country: None (occurrence: None)
  Receive Date: 20110606
  Receipt Date: 20110601
  Transmission Date: 20111010
  Serious: No
  Sender: FDA-Public Use
  Company Number: US-PFIZER INC-2011085757

PATIENT
  Sex: Female
  Weight: 68.027 kg

DRUGS (2)
  1. ZOLOFT [Suspect]
     Indication: POSTPARTUM DEPRESSION
     Dosage: 25 MG, 1X/DAY
     Route: 048
     Dates: start: 20110101, end: 20110416
  2. METFORMIN [Concomitant]
     Indication: INSULIN RESISTANCE
     Dosage: UNK

REACTIONS (4)
  - TINNITUS [None]
  - FEELING HOT [None]
  - EAR DISORDER [None]
  - NASOPHARYNGITIS [None]
